FAERS Safety Report 16221021 (Version 2)
Quarter: 2019Q2

REPORT INFORMATION
  Report Type: Spontaneous
  Country: JP (occurrence: JP)
  Receive Date: 20190421
  Receipt Date: 20190529
  Transmission Date: 20190711
  Serious: Yes (Death)
  Sender: FDA-Public Use
  Company Number: JP-BIOGEN-2019BI00727916

PATIENT
  Sex: Female

DRUGS (1)
  1. TECFIDERA [Suspect]
     Active Substance: DIMETHYL FUMARATE
     Indication: MULTIPLE SCLEROSIS
     Route: 048
     Dates: end: 20190401

REACTIONS (4)
  - Hyperthyroidism [Fatal]
  - Thyrotoxic crisis [Fatal]
  - Respiratory failure [Fatal]
  - Cardiac failure [Fatal]
